FAERS Safety Report 6838777-8 (Version None)
Quarter: 2010Q3

REPORT INFORMATION
  Report Type: 
  Country: None (occurrence: None)
  Receive Date: 20100713
  Receipt Date: 20070628
  Transmission Date: 20110219
  Serious: No
  Sender: FDA-Public Use
  Company Number: US-PFIZER INC-2007035660

PATIENT
  Sex: Female
  Weight: 52.2 kg

DRUGS (1)
  1. CHANTIX [Suspect]
     Indication: SMOKING CESSATION THERAPY
     Dates: start: 20070330, end: 20070427

REACTIONS (7)
  - DISTURBANCE IN ATTENTION [None]
  - DRY MOUTH [None]
  - FEELING ABNORMAL [None]
  - HEADACHE [None]
  - HYPERSENSITIVITY [None]
  - NAUSEA [None]
  - VOMITING [None]
